FAERS Safety Report 10018868 (Version 2)
Quarter: 2014Q1

REPORT INFORMATION
  Report Type: Spontaneous
  Country: US (occurrence: US)
  Receive Date: 20140318
  Receipt Date: 20140319
  Transmission Date: 20141002
  Serious: No
  Sender: FDA-Public Use
  Company Number: US-009507513-1403USA007457

PATIENT
  Sex: Female
  Weight: 73.47 kg

DRUGS (1)
  1. IMPLANON [Suspect]
     Indication: CONTRACEPTION
     Dosage: ROUTE-RIGHT ARM SUBDERMAL
     Route: 059
     Dates: start: 20090305

REACTIONS (3)
  - Infertility female [Unknown]
  - Medical device complication [Unknown]
  - Device difficult to use [Unknown]
